FAERS Safety Report 13003980 (Version 1)
Quarter: 2016Q4

REPORT INFORMATION
  Report Type: Spontaneous
  Country: US (occurrence: US)
  Receive Date: 20161206
  Receipt Date: 20161206
  Transmission Date: 20170207
  Serious: Yes (Other)
  Sender: FDA-Public Use
  Company Number: US-009507513-1611USA014350

PATIENT
  Age: 57 Year
  Sex: Male

DRUGS (2)
  1. ASMANEX [Suspect]
     Active Substance: MOMETASONE FUROATE
     Indication: HEAD DISCOMFORT
     Dosage: UNK
     Route: 048
     Dates: start: 20161128
  2. ASMANEX [Suspect]
     Active Substance: MOMETASONE FUROATE
     Indication: CHEST DISCOMFORT

REACTIONS (2)
  - Product use issue [Unknown]
  - Respiratory tract infection [Not Recovered/Not Resolved]

NARRATIVE: CASE EVENT DATE: 201611
